FAERS Safety Report 8222773-2 (Version None)
Quarter: 2012Q1

REPORT INFORMATION
  Report Type: 
  Country: None (occurrence: None)
  Receive Date: 20120320
  Receipt Date: 20120308
  Transmission Date: 20120608
  Serious: Yes (Hospitalization)
  Sender: FDA-Public Use
  Company Number: LV-PFIZER INC-2012064741

PATIENT
  Age: 63 Year
  Sex: Male

DRUGS (4)
  1. LANTUS [Concomitant]
     Indication: TYPE 2 DIABETES MELLITUS
     Route: 065
  2. INSULIN GLULISINE [Concomitant]
     Indication: TYPE 2 DIABETES MELLITUS
     Dosage: UNK
     Route: 065
  3. CEPHALOSPORIN C [Concomitant]
  4. AMIODARONE HCL [Suspect]
     Indication: ATRIAL FIBRILLATION
     Dosage: 200 MG DAILY
     Route: 048
     Dates: start: 20080101, end: 20110201

REACTIONS (4)
  - CARDIAC FAILURE [None]
  - HYPERTHYROIDISM [None]
  - PNEUMONIA [None]
  - EMBOLISM [None]
